FAERS Safety Report 6451004-9 (Version None)
Quarter: 2009Q4

REPORT INFORMATION
  Report Type: 
  Country: None (occurrence: None)
  Receive Date: 20091123
  Receipt Date: 20091113
  Transmission Date: 20100525
  Serious: Yes (Death)
  Sender: FDA-Public Use
  Company Number: B0605226A

PATIENT
  Sex: Female

DRUGS (1)
  1. ZANAMIVIR [Suspect]
     Indication: H1N1 INFLUENZA
     Dosage: 60MG TWICE PER DAY
     Route: 042
     Dates: start: 20091105

REACTIONS (4)
  - ACUTE LYMPHOCYTIC LEUKAEMIA [None]
  - CONDITION AGGRAVATED [None]
  - CONVULSION [None]
  - INFECTION [None]
